FAERS Safety Report 9780540 (Version 2)
Quarter: 2014Q1

REPORT INFORMATION
  Report Type: Spontaneous
  Country: US (occurrence: US)
  Receive Date: 20131224
  Receipt Date: 20140113
  Transmission Date: 20141002
  Serious: Yes (Hospitalization)
  Sender: FDA-Public Use
  Company Number: US-BRISTOL-MYERS SQUIBB COMPANY-19919232

PATIENT
  Age: 67 Year
  Sex: Male

DRUGS (6)
  1. COUMADIN [Suspect]
     Indication: ATRIAL FIBRILLATION
     Dosage: SOMETIMES 2.5MG 3 OR 4 TIMES PER WEEK AND 5MG TWICE WEEKLY
  2. WARFARIN SODIUM [Suspect]
  3. THYROID [Concomitant]
  4. ZANTAC [Concomitant]
  5. TESTOSTERONE [Concomitant]
     Dosage: INJ
  6. DEXLANSOPRAZOLE [Concomitant]

REACTIONS (3)
  - Oesophageal carcinoma [Unknown]
  - International normalised ratio fluctuation [Unknown]
  - Blood creatinine increased [Unknown]
